FAERS Safety Report 6706213-8 (Version None)
Quarter: 2010Q2

REPORT INFORMATION
  Report Type: 
  Country: None (occurrence: None)
  Receive Date: 20100503
  Receipt Date: 20100423
  Transmission Date: 20101027
  Serious: Yes (Hospitalization)
  Sender: FDA-Public Use
  Company Number: US-MYLANLABS-2010S1004521

PATIENT
  Age: 64 Year
  Sex: Female
  Weight: 86.4 kg

DRUGS (19)
  1. PHENYTOIN SODIUM [Suspect]
     Indication: PETIT MAL EPILEPSY
     Route: 048
     Dates: start: 20090827
  2. PHENYTOIN SODIUM [Suspect]
     Indication: CONVULSION
     Route: 048
     Dates: start: 20090827
  3. PHENYTOIN SODIUM [Suspect]
     Route: 048
     Dates: start: 20090827
  4. PHENYTOIN SODIUM [Suspect]
     Route: 048
     Dates: start: 20090827
  5. DILANTIN [Suspect]
     Indication: PETIT MAL EPILEPSY
     Route: 048
     Dates: start: 20090801
  6. LIGNOSPAN /00033402/ [Suspect]
     Indication: TOOTH REPAIR
     Route: 004
     Dates: start: 20100223, end: 20100223
  7. MEPIVACAINE [Suspect]
     Indication: TOOTH REPAIR
     Route: 004
     Dates: start: 20100223, end: 20100223
  8. COPAXONE [Concomitant]
     Indication: MULTIPLE SCLEROSIS
     Route: 058
  9. BACLOFEN [Concomitant]
     Indication: MULTIPLE SCLEROSIS
     Route: 048
  10. VESICARE [Concomitant]
     Indication: URINARY INCONTINENCE
     Route: 048
  11. MULTI-VITAMIN [Concomitant]
     Route: 048
  12. LIPITOR [Concomitant]
     Indication: BLOOD CHOLESTEROL INCREASED
     Route: 048
  13. EPIPEN [Concomitant]
     Indication: ALLERGY TO ARTHROPOD STING
     Route: 030
  14. CALCIUM [Concomitant]
     Route: 048
  15. COLACE [Concomitant]
     Route: 048
  16. COLACE [Concomitant]
     Route: 048
  17. ECOTRIN [Concomitant]
     Route: 048
  18. TOPROL-XL [Concomitant]
     Route: 048
  19. TYLENOL-500 [Concomitant]

REACTIONS (6)
  - ANAPHYLACTIC REACTION [None]
  - CHEST PAIN [None]
  - DRUG INTERACTION [None]
  - DYSPNOEA [None]
  - FEELING ABNORMAL [None]
  - MYOCARDIAL INFARCTION [None]
